FAERS Safety Report 4638343-9 (Version None)
Quarter: 2005Q2

REPORT INFORMATION
  Report Type: 
  Country: None (occurrence: None)
  Receive Date: 20050418
  Receipt Date: 20050411
  Transmission Date: 20051028
  Serious: Yes (Life-Threatening)
  Sender: FDA-Public Use
  Company Number: MY-MERCK-0504MYS00022

PATIENT
  Age: 34 Year
  Sex: Male
  Weight: 68 kg

DRUGS (2)
  1. PROPECIA [Suspect]
     Indication: ALOPECIA
     Route: 048
     Dates: start: 20050312, end: 20050402
  2. PROPECIA [Suspect]
     Route: 065
     Dates: start: 20050401, end: 20050401

REACTIONS (3)
  - PRURITUS [None]
  - RASH VESICULAR [None]
  - TESTICULAR PAIN [None]
